FAERS Safety Report 18416349 (Version 3)
Quarter: 2020Q4

REPORT INFORMATION
  Report Type: Spontaneous
  Country: CN (occurrence: CN)
  Receive Date: 20201022
  Receipt Date: 20201112
  Transmission Date: 20210114
  Serious: Yes (Other)
  Sender: FDA-Public Use
  Company Number: CN-ASTRAZENECA-2020SF36134

PATIENT
  Age: 42 Year
  Sex: Female

DRUGS (1)
  1. IRESSA [Suspect]
     Active Substance: GEFITINIB
     Indication: NON-SMALL CELL LUNG CANCER
     Route: 048
     Dates: end: 202007

REACTIONS (5)
  - Therapy cessation [Unknown]
  - Cough [Recovering/Resolving]
  - Product use issue [Recovered/Resolved]
  - Product prescribing issue [Unknown]
  - Drug resistance [Unknown]

NARRATIVE: CASE EVENT DATE: 2020
